FAERS Safety Report 25194481 (Version 1)
Quarter: 2025Q2

REPORT INFORMATION
  Report Type: Other
  Country: HR (occurrence: HR)
  Receive Date: 20250414
  Receipt Date: 20250414
  Transmission Date: 20250716
  Serious: Yes (Other)
  Sender: AMPHASTAR
  Company Number: HR-Amphastar Pharmaceuticals, Inc.-2174890

PATIENT
  Age: 33 Year
  Sex: Female
  Weight: 43 kg

DRUGS (3)
  1. BAQSIMI [Suspect]
     Active Substance: GLUCAGON
     Indication: Blood glucose decreased
     Dates: start: 20250315, end: 20250315
  2. LEVEMIR [Concomitant]
     Active Substance: INSULIN DETEMIR
  3. NOVORAPID [Concomitant]
     Active Substance: INSULIN ASPART

REACTIONS (6)
  - Hemihypoaesthesia [Recovering/Resolving]
  - Exposure during pregnancy [Unknown]
  - Nasal discomfort [Recovering/Resolving]
  - Vomiting [Recovering/Resolving]
  - Headache [Recovering/Resolving]
  - Intranasal hypoaesthesia [Recovering/Resolving]

NARRATIVE: CASE EVENT DATE: 20250315
